FAERS Safety Report 4933716-9 (Version None)
Quarter: 2006Q1

REPORT INFORMATION
  Report Type: 
  Country: None (occurrence: None)
  Receive Date: 20060306
  Receipt Date: 20060302
  Transmission Date: 20060701
  Serious: Yes (Life-Threatening)
  Sender: FDA-Public Use
  Company Number: DK-BOEHRINGER INGELHEIM PHARMACEUTICALS, INC.-2006-SW-00100DB

PATIENT
  Sex: Female

DRUGS (4)
  1. SIFROL TAB 0.088 MG [Suspect]
     Indication: PARKINSON'S DISEASE
     Route: 048
     Dates: start: 20050607, end: 20050722
  2. MADOPAR [Suspect]
     Indication: PARKINSON'S DISEASE
     Route: 048
     Dates: start: 20021104
  3. BONYL [Suspect]
     Dosage: 250 - 500 MG DAILY
  4. TRIATEC [Suspect]

REACTIONS (3)
  - ABDOMINAL PAIN UPPER [None]
  - DUODENAL ULCER HAEMORRHAGE [None]
  - HAEMOGLOBIN DECREASED [None]
